FAERS Safety Report 14910749 (Version 1)
Quarter: 2018Q2

REPORT INFORMATION
  Report Type: Spontaneous
  Country: US (occurrence: US)
  Receive Date: 20180517
  Receipt Date: 20180517
  Transmission Date: 20180711
  Serious: No
  Sender: FDA-Public Use
  Company Number: US-SYNERGY PHARMACEUTICALS INC-US-2018SNG000085

PATIENT

DRUGS (5)
  1. REMERON [Concomitant]
     Active Substance: MIRTAZAPINE
     Indication: PANIC ATTACK
  2. DEPAKOTE [Concomitant]
     Active Substance: DIVALPROEX SODIUM
     Indication: BIPOLAR DISORDER
     Dosage: 500 MG, QD
     Route: 048
     Dates: start: 1998
  3. TRULANCE [Suspect]
     Active Substance: PLECANATIDE
     Indication: IRRITABLE BOWEL SYNDROME
     Dosage: 3 MG, QD
     Route: 048
     Dates: start: 20180410, end: 20180411
  4. LIPITOR [Concomitant]
     Active Substance: ATORVASTATIN CALCIUM
     Indication: BLOOD CHOLESTEROL INCREASED
     Dosage: 10 MG, QD
     Route: 048
     Dates: start: 2008
  5. REMERON [Concomitant]
     Active Substance: MIRTAZAPINE
     Indication: ANXIETY
     Dosage: 30 MG, QD
     Route: 048
     Dates: start: 1998

REACTIONS (5)
  - Gastrointestinal sounds abnormal [Recovered/Resolved]
  - Drug dose omission [Not Recovered/Not Resolved]
  - Muscle spasms [Recovering/Resolving]
  - Anal incontinence [Recovering/Resolving]
  - Diarrhoea [Not Recovered/Not Resolved]

NARRATIVE: CASE EVENT DATE: 20180410
